FAERS Safety Report 6176338-7 (Version None)
Quarter: 2009Q2

REPORT INFORMATION
  Report Type: 
  Country: None (occurrence: None)
  Receive Date: 20090501
  Receipt Date: 20090423
  Transmission Date: 20091009
  Serious: Yes (Hospitalization)
  Sender: FDA-Public Use
  Company Number: US-BIOGENIDEC-2008BI022939

PATIENT
  Age: 57 Year
  Sex: Female

DRUGS (1)
  1. AVONEX [Suspect]
     Indication: MULTIPLE SCLEROSIS
     Route: 030
     Dates: start: 20070627

REACTIONS (10)
  - ASTHMA [None]
  - BONE PAIN [None]
  - DRY EYE [None]
  - INFLUENZA LIKE ILLNESS [None]
  - INJECTION SITE HAEMORRHAGE [None]
  - NASAL DRYNESS [None]
  - NEURALGIA [None]
  - PAIN IN EXTREMITY [None]
  - RESPIRATORY TRACT CONGESTION [None]
  - VITAMIN D DEFICIENCY [None]
